FAERS Safety Report 18574666 (Version 1)
Quarter: 2020Q4

REPORT INFORMATION
  Report Type: Spontaneous
  Country: US (occurrence: US)
  Receive Date: 20201202
  Receipt Date: 20201202
  Transmission Date: 20210114
  Serious: Yes (Life-Threatening, Hospitalization)
  Sender: FDA-Public Use
  Company Number: None

PATIENT
  Age: 70 Year
  Sex: Male
  Weight: 73 kg

DRUGS (1)
  1. CETUXIMAB (CETUXIMAB 2MG/ML INJ, 100ML) [Suspect]
     Active Substance: CETUXIMAB
     Indication: HEAD AND NECK CANCER METASTATIC
     Dates: start: 20201119, end: 20201119

REACTIONS (8)
  - Unresponsive to stimuli [None]
  - Respiratory depression [None]
  - Dyspnoea [None]
  - Hypotension [None]
  - Disorientation [None]
  - Infusion related reaction [None]
  - Anaphylactic reaction [None]
  - Pulse absent [None]

NARRATIVE: CASE EVENT DATE: 20201119
